FAERS Safety Report 8267530-6 (Version None)
Quarter: 2012Q2

REPORT INFORMATION
  Report Type: 
  Country: None (occurrence: None)
  Receive Date: 20120409
  Receipt Date: 20120329
  Transmission Date: 20120825
  Serious: Yes (Hospitalization, Other)
  Sender: FDA-Public Use
  Company Number: US-ELI_LILLY_AND_COMPANY-US201007007481

PATIENT
  Sex: Female

DRUGS (17)
  1. FORTEO [Suspect]
     Dosage: 20 UG, QD
     Route: 065
  2. FORTEO [Suspect]
     Dosage: 20 UG, QD
     Dates: start: 20120204
  3. VITAMIN D [Concomitant]
     Dosage: 1000 U, QD
  4. FORTEO [Suspect]
     Dosage: 20 UG, QD
     Route: 065
  5. NORCO [Concomitant]
     Indication: PAIN
     Dosage: UNK, PRN
  6. MIACALCIN [Concomitant]
  7. CALTRATE PLUS-D [Concomitant]
     Dosage: UNK, QD
  8. FORTEO [Suspect]
     Dosage: 20 UG, QD
     Route: 065
  9. LASIX [Concomitant]
     Indication: FLUID RETENTION
     Dosage: 20 MG, QD
  10. ASPIRIN [Concomitant]
     Dosage: 1 DF, QD
  11. FORTEO [Suspect]
     Indication: OSTEOPOROSIS
     Dosage: 20 UG, QD
     Route: 065
  12. FORTEO [Suspect]
     Dosage: 20 UG, QD
     Route: 065
     Dates: end: 20110227
  13. LISINOPRIL [Concomitant]
     Dosage: 20 MG, QD
  14. PROTONIX [Concomitant]
     Dosage: UNK, QD
  15. CELEBREX [Concomitant]
     Dosage: 200 MG, QD
  16. LIDODERM [Concomitant]
     Dosage: UNK, PRN
  17. MULTI-VITAMIN [Concomitant]
     Dosage: UNK, QD

REACTIONS (20)
  - HIP FRACTURE [None]
  - SKIN INJURY [None]
  - OEDEMA PERIPHERAL [None]
  - GASTROINTESTINAL INFECTION [None]
  - FLUID RETENTION [None]
  - OPEN WOUND [None]
  - FALL [None]
  - BACK PAIN [None]
  - INFECTION [None]
  - LIMB INJURY [None]
  - DIARRHOEA [None]
  - URINARY TRACT INFECTION [None]
  - WOUND HAEMORRHAGE [None]
  - WOUND SECRETION [None]
  - FEELING ABNORMAL [None]
  - IMPAIRED HEALING [None]
  - LACERATION [None]
  - WOUND COMPLICATION [None]
  - SCOLIOSIS [None]
  - BACK DISORDER [None]
